FAERS Safety Report 10093309 (Version 1)
Quarter: 2014Q2

REPORT INFORMATION
  Report Type: Spontaneous
  Country: US (occurrence: US)
  Receive Date: 20140421
  Receipt Date: 20140421
  Transmission Date: 20141212
  Serious: No
  Sender: FDA-Public Use
  Company Number: US-SA-2013SA120334

PATIENT
  Age: 85 Year
  Sex: Female

DRUGS (5)
  1. ALLEGRA 24 HOUR [Suspect]
     Indication: HYPERSENSITIVITY
     Route: 048
     Dates: start: 20131106, end: 20131118
  2. LEVOTHYROXINE [Suspect]
     Route: 065
  3. PANTOPRAZOLE [Suspect]
     Route: 065
  4. CELEBREX [Suspect]
     Route: 065
  5. VITAMIN D3 [Suspect]
     Route: 065

REACTIONS (3)
  - Diarrhoea [Not Recovered/Not Resolved]
  - Musculoskeletal pain [Not Recovered/Not Resolved]
  - Drug dose omission [Unknown]
